FAERS Safety Report 7692776-5 (Version None)
Quarter: 2011Q3

REPORT INFORMATION
  Report Type: 
  Country: None (occurrence: None)
  Receive Date: 20110819
  Receipt Date: 20110809
  Transmission Date: 20111222
  Serious: Yes (Other)
  Sender: FDA-Public Use
  Company Number: GB-JNJFOC-20110805194

PATIENT
  Age: 39 Year
  Sex: Female

DRUGS (3)
  1. INFLIXIMAB, RECOMBINANT [Suspect]
     Indication: PSORIASIS
     Route: 042
  2. INFLIXIMAB, RECOMBINANT [Suspect]
     Route: 042
  3. METHOTREXATE [Concomitant]
     Indication: PSORIASIS

REACTIONS (2)
  - MALIGNANT MELANOMA IN SITU [None]
  - METASTATIC MALIGNANT MELANOMA [None]
